FAERS Safety Report 5711561-4 (Version None)
Quarter: 2008Q2

REPORT INFORMATION
  Report Type: 
  Country: None (occurrence: None)
  Receive Date: 20080418
  Receipt Date: 20080418
  Transmission Date: 20081010
  Serious: Yes (Life-Threatening, Hospitalization, Other)
  Sender: FDA-Public Use
  Company Number: None

PATIENT
  Age: 6 Year
  Sex: Female
  Weight: 15.8759 kg

DRUGS (1)
  1. ZYPREXA [Suspect]
     Indication: BIPOLAR DISORDER
     Dosage: ONE PILL ONCE DAILY PO
     Route: 048
     Dates: start: 20080307, end: 20080327

REACTIONS (6)
  - AGGRESSION [None]
  - CRYING [None]
  - ENURESIS [None]
  - HALLUCINATION [None]
  - SOMNOLENCE [None]
  - SPEECH DISORDER [None]
